FAERS Safety Report 19593853 (Version 1)
Quarter: 2021Q3

REPORT INFORMATION
  Report Type: Spontaneous
  Country: CA (occurrence: CA)
  Receive Date: 20210722
  Receipt Date: 20210722
  Transmission Date: 20211014
  Serious: Yes (Other)
  Sender: FDA-Public Use
  Company Number: CA-TEVA-2021-CA-1934099

PATIENT
  Age: 58 Year
  Sex: Female

DRUGS (10)
  1. PMS TRANDOLAPRIL [Concomitant]
  2. METHOTREXATE. [Suspect]
     Active Substance: METHOTREXATE
     Indication: PRODUCT USED FOR UNKNOWN INDICATION
     Route: 058
  3. BISOPROLOL [Concomitant]
     Active Substance: BISOPROLOL
  4. FOLIC ACID. [Concomitant]
     Active Substance: FOLIC ACID
  5. ZOPICLONE [Concomitant]
     Active Substance: ZOPICLONE
  6. LEFLUNOMIDE. [Concomitant]
     Active Substance: LEFLUNOMIDE
  7. DESOXIMETASONE. [Concomitant]
     Active Substance: DESOXIMETASONE
  8. ASA [Concomitant]
     Active Substance: ASPIRIN
  9. PREDNISONE. [Concomitant]
     Active Substance: PREDNISONE
     Route: 065
  10. ROSUVASTATIN. [Concomitant]
     Active Substance: ROSUVASTATIN

REACTIONS (7)
  - Pain [Unknown]
  - Drug ineffective [Unknown]
  - Rheumatoid arthritis [Unknown]
  - Emphysema [Unknown]
  - Off label use [Unknown]
  - Product use issue [Unknown]
  - Myocardial infarction [Unknown]
